FAERS Safety Report 11971638 (Version 1)
Quarter: 2016Q1

REPORT INFORMATION
  Report Type: Spontaneous
  Country: US (occurrence: US)
  Receive Date: 20160128
  Receipt Date: 20160128
  Transmission Date: 20160526
  Serious: Yes (Death, Other)
  Sender: FDA-Public Use
  Company Number: US-TAKEDA-TPA2012A08444

PATIENT

DRUGS (4)
  1. METFORMIN [Concomitant]
     Active Substance: METFORMIN HYDROCHLORIDE
     Dates: start: 200111, end: 200303
  2. LANTUS [Concomitant]
     Active Substance: INSULIN GLARGINE
     Dates: start: 201011, end: 201105
  3. GLUCOPHAGE [Concomitant]
     Active Substance: METFORMIN HYDROCHLORIDE
     Dates: start: 200005, end: 200112
  4. ACTOS [Suspect]
     Active Substance: PIOGLITAZONE HYDROCHLORIDE
     Indication: TYPE 2 DIABETES MELLITUS
     Dosage: UNK
     Route: 048
     Dates: start: 200106, end: 200704

REACTIONS (3)
  - Septic shock [Fatal]
  - Bladder cancer [Not Recovered/Not Resolved]
  - Colitis ischaemic [Fatal]

NARRATIVE: CASE EVENT DATE: 20090415
